FAERS Safety Report 8847621 (Version 1)
Quarter: 2012Q4

REPORT INFORMATION
  Report Type: 
  Country: US (occurrence: US)
  Receive Date: 20121018
  Receipt Date: 20121018
  Transmission Date: 20130627
  Serious: Yes (Death)
  Sender: FDA-Public Use
  Company Number: CHPA2012US015738

PATIENT
  Sex: Female

DRUGS (1)
  1. GAS-X EXTRA STRENGTH [Suspect]
     Dosage: Unk, Unk
     Route: 048
     Dates: start: 20120404

REACTIONS (2)
  - Death [Fatal]
  - Foreign body [Unknown]
